FAERS Safety Report 8462020-X (Version None)
Quarter: 2012Q2

REPORT INFORMATION
  Report Type: 
  Country: None (occurrence: None)
  Receive Date: 20120625
  Receipt Date: 20120614
  Transmission Date: 20120825
  Serious: Yes (Other)
  Sender: FDA-Public Use
  Company Number: BR-ASTRAZENECA-2012SE40409

PATIENT
  Age: 53 Year
  Sex: Female
  Weight: 68 kg

DRUGS (2)
  1. BRILINTA [Suspect]
     Indication: VENOUS OCCLUSION
     Route: 048
  2. ATACAND HCT [Suspect]
     Indication: HYPERTENSION
     Dosage: 8/12.5 MG, DAILY
     Route: 048
     Dates: start: 20120528

REACTIONS (2)
  - VENOUS OCCLUSION [None]
  - OFF LABEL USE [None]
